FAERS Safety Report 19774138 (Version 1)
Quarter: 2021Q3

REPORT INFORMATION
  Report Type: Spontaneous
  Country: NL (occurrence: NL)
  Receive Date: 20210901
  Receipt Date: 20210901
  Transmission Date: 20211014
  Serious: Yes (Life-Threatening)
  Sender: FDA-Public Use
  Company Number: NL-TEVA-2021-NL-1945797

PATIENT
  Age: 61 Year
  Sex: Male
  Weight: 75 kg

DRUGS (2)
  1. NAPROXEN TABLET MSR 500MG / NAPROXEN TEVA TABLET MSR 500MG [Suspect]
     Active Substance: NAPROXEN
     Indication: DIFFUSE IDIOPATHIC SKELETAL HYPEROSTOSIS
     Dosage: 3 X A WEEK 1 PIECE, 1 DF
     Route: 065
     Dates: start: 20210201, end: 20210804
  2. ACETYLSALICYLZUUR/PARACETAMOL/COF TAB 250/250/50MG / ROTER APC TABLET [Concomitant]
     Dosage: 250/250/50 MG, THERAPY START AND END DATE: ASKU, 1 DF

REACTIONS (2)
  - Thrombocytopenia [Recovering/Resolving]
  - Deep vein thrombosis [Recovering/Resolving]

NARRATIVE: CASE EVENT DATE: 20210801
